FAERS Safety Report 5524104-5 (Version None)
Quarter: 2007Q4

REPORT INFORMATION
  Report Type: 
  Country: None (occurrence: None)
  Receive Date: 20071121
  Receipt Date: 20071116
  Transmission Date: 20080405
  Serious: Yes (Other)
  Sender: FDA-Public Use
  Company Number: US-ROXANE LABORATORIES, INC-2007-DE-06806GD

PATIENT
  Age: 44 Year
  Sex: Female

DRUGS (4)
  1. IBUPROFEN TABLETS [Suspect]
     Indication: MIGRAINE
  2. NAPROXEN [Suspect]
     Indication: MIGRAINE
  3. SUMATRIPTAN SUCCINATE [Suspect]
     Indication: MIGRAINE
     Route: 058
  4. METOCLOPRAMIDE [Suspect]
     Indication: MIGRAINE

REACTIONS (5)
  - ANXIETY [None]
  - COORDINATION ABNORMAL [None]
  - HYPERREFLEXIA [None]
  - SEROTONIN SYNDROME [None]
  - TONIC CLONIC MOVEMENTS [None]
